FAERS Safety Report 13129186 (Version 1)
Quarter: 2017Q1

REPORT INFORMATION
  Report Type: Spontaneous
  Country: None (occurrence: US)
  Receive Date: 20170118
  Receipt Date: 20170118
  Transmission Date: 20170428
  Serious: Yes (Hospitalization)
  Sender: FDA-Public Use
  Company Number: None

PATIENT
  Age: 68 Year
  Sex: Female

DRUGS (2)
  1. CEFDINIR 300 MG SANDOZ [Suspect]
     Active Substance: CEFDINIR
     Indication: COUGH
     Dosage: 20 CAPSULES TWICE A DAY BY MOUTH
     Route: 048
     Dates: start: 20161221
  2. CEFDINIR 300 MG SANDOZ [Suspect]
     Active Substance: CEFDINIR
     Indication: UPPER RESPIRATORY TRACT INFECTION
     Dosage: 20 CAPSULES TWICE A DAY BY MOUTH
     Route: 048
     Dates: start: 20161221

REACTIONS (3)
  - Blood pressure decreased [None]
  - Malaise [None]
  - Loss of consciousness [None]

NARRATIVE: CASE EVENT DATE: 20161221
